FAERS Safety Report 12652994 (Version 2)
Quarter: 2016Q4

REPORT INFORMATION
  Report Type: Spontaneous
  Country: BE (occurrence: BE)
  Receive Date: 20160815
  Receipt Date: 20161021
  Transmission Date: 20170207
  Serious: Yes (Other)
  Sender: FDA-Public Use
  Company Number: BE-ELI_LILLY_AND_COMPANY-BE201608003163

PATIENT
  Age: 50 Year
  Sex: Female

DRUGS (5)
  1. LYSANXIA [Concomitant]
     Active Substance: PRAZEPAM
     Dosage: 45 MG, PRN
     Route: 065
  2. LAMBIPOL [Concomitant]
     Active Substance: LAMOTRIGINE
     Dosage: 200 MG, UNKNOWN
     Route: 065
  3. ZYPREXA [Suspect]
     Active Substance: OLANZAPINE
     Indication: BIPOLAR DISORDER
     Dosage: 30 MG, UNKNOWN
     Route: 065
     Dates: end: 201607
  4. LITHIUM. [Concomitant]
     Active Substance: LITHIUM
     Dosage: UNK, UNKNOWN
     Route: 065
  5. CLOPIXOL (DECANOATE) [Concomitant]
     Active Substance: ZUCLOPENTHIXOL DECANOATE
     Dosage: 200 MG, UNKNOWN
     Route: 065

REACTIONS (1)
  - Electrocardiogram QT prolonged [Not Recovered/Not Resolved]
